FAERS Safety Report 9122032 (Version 1)
Quarter: 2013Q1

REPORT INFORMATION
  Report Type: Spontaneous
  Country: US (occurrence: US)
  Receive Date: 20130114
  Receipt Date: 20130114
  Transmission Date: 20140127
  Serious: Yes (Hospitalization)
  Sender: FDA-Public Use
  Company Number: US-JNJFOC-20130102239

PATIENT
  Age: 65 Year
  Sex: Male
  Weight: 79.38 kg

DRUGS (8)
  1. BENADRYL ALLERGY ULTRATAB [Suspect]
     Indication: ADVERSE DRUG REACTION
     Route: 048
     Dates: start: 20110607, end: 20110608
  2. GLIPIZIDE [Concomitant]
     Indication: DIABETES MELLITUS
     Dosage: 3 YEAR
     Route: 065
     Dates: start: 2008
  3. METFORMIN [Concomitant]
     Indication: DIABETES MELLITUS
     Dosage: 1 YEAR
     Route: 065
     Dates: start: 2010
  4. LIPITOR [Concomitant]
     Indication: BLOOD CHOLESTEROL
     Dosage: 11 YEAR
     Route: 065
     Dates: start: 1998
  5. LOSARTAN [Concomitant]
     Indication: RENAL DISORDER
     Dosage: 1 YEAR
     Route: 065
     Dates: start: 2010
  6. ASPIRIN [Concomitant]
     Indication: CARDIAC DISORDER
     Dosage: 7 YEAR
     Route: 065
     Dates: start: 2004
  7. OXYBUTYNIN CHLORIDE [Concomitant]
     Indication: URINARY INCONTINENCE
     Dosage: 9 YEAR
     Route: 065
     Dates: start: 2002
  8. POTASSIUM CITRATE [Concomitant]
     Indication: NEPHROLITHIASIS
     Dosage: 1 YEAR
     Route: 065
     Dates: start: 201012

REACTIONS (3)
  - Myocardial infarction [Recovered/Resolved]
  - Discomfort [Recovered/Resolved]
  - Off label use [Unknown]
